FAERS Safety Report 10061566 (Version 2)
Quarter: 2014Q2

REPORT INFORMATION
  Report Type: Spontaneous
  Country: US (occurrence: US)
  Receive Date: 20140407
  Receipt Date: 20140508
  Transmission Date: 20141212
  Serious: Yes (Hospitalization, Other)
  Sender: FDA-Public Use
  Company Number: US-SA-2014SA041645

PATIENT
  Age: 59 Year
  Sex: Male
  Weight: 70 kg

DRUGS (2)
  1. FABRAZYME [Suspect]
     Indication: FABRY^S DISEASE
     Route: 042
     Dates: start: 20050718
  2. ALL OTHER THERAPEUTIC PRODUCTS [Concomitant]
     Dosage: INHALER

REACTIONS (2)
  - Atrial fibrillation [Not Recovered/Not Resolved]
  - Hospitalisation [Unknown]
